FAERS Safety Report 10451533 (Version 1)
Quarter: 2014Q3

REPORT INFORMATION
  Report Type: Report from Study
  Country: US (occurrence: US)
  Receive Date: 20140913
  Receipt Date: 20140913
  Transmission Date: 20150326
  Serious: Yes (Other)
  Sender: FDA-Public Use
  Company Number: US-ABBVIE-14K-163-1282455-00

PATIENT
  Sex: Female
  Weight: 79 kg

DRUGS (7)
  1. TOPAMAX [Concomitant]
     Active Substance: TOPIRAMATE
  2. HUMIRA [Suspect]
     Active Substance: ADALIMUMAB
     Indication: CROHN^S DISEASE
     Dosage: STARTED WITH LOADING DOSE
     Dates: start: 20140805, end: 20140805
  3. HUMIRA [Suspect]
     Active Substance: ADALIMUMAB
     Dates: start: 201408
  4. VITAMIN D [Concomitant]
     Active Substance: CHOLECALCIFEROL
     Indication: ASTHENIA
  5. TOPAMAX [Concomitant]
     Active Substance: TOPIRAMATE
     Indication: MIGRAINE
     Dosage: THREE TABLETS IN AM AND THREE TABLETS IN PM
  6. ORTHO LO [Concomitant]
     Indication: CONTRACEPTION
  7. LEVOTHYROXINE [Concomitant]
     Active Substance: LEVOTHYROXINE
     Indication: THYROID DISORDER

REACTIONS (1)
  - Convulsion [Not Recovered/Not Resolved]

NARRATIVE: CASE EVENT DATE: 2014
